FAERS Safety Report 4997627-5 (Version None)
Quarter: 2006Q1

REPORT INFORMATION
  Report Type: 
  Country: None (occurrence: None)
  Receive Date: 20060315
  Receipt Date: 20060118
  Transmission Date: 20060701
  Serious: Yes (Other)
  Sender: FDA-Public Use
  Company Number: 432765

PATIENT
  Sex: Female

DRUGS (2)
  1. BONIVA [Suspect]
     Dosage: 1 PER MONTH
     Dates: start: 20051215
  2. STEROIDS NOS (STEROID NOS) [Concomitant]

REACTIONS (1)
  - MUSCLE SPASMS [None]
